FAERS Safety Report 18731162 (Version 1)
Quarter: 2021Q1

REPORT INFORMATION
  Report Type: Spontaneous
  Country: IT (occurrence: IT)
  Receive Date: 20210112
  Receipt Date: 20210112
  Transmission Date: 20210419
  Serious: Yes (Hospitalization)
  Sender: FDA-Public Use
  Company Number: IT-TEVA-2021-IT-1867156

PATIENT
  Age: 53 Year
  Sex: Male

DRUGS (9)
  1. FOLIC ACID. [Concomitant]
     Active Substance: FOLIC ACID
     Dosage: 5MG
  2. INFLUENZA VACCINE [Concomitant]
     Active Substance: INFLUENZA VIRUS VACCINE
     Dates: start: 20201116
  3. PEMETREXED DISODIUM [Concomitant]
     Active Substance: PEMETREXED DISODIUM
     Indication: NEOPLASM MALIGNANT
     Dosage: 970MG
     Route: 042
     Dates: start: 20201013, end: 20201106
  4. DEPALGOS 5 MG + 325 MG COMPRESSE RIVESTITE CON FILM [Concomitant]
     Indication: BONE PAIN
     Dosage: 5MG
     Route: 048
     Dates: start: 20200925
  5. CARBOPLATIN. [Suspect]
     Active Substance: CARBOPLATIN
     Indication: NEOPLASM MALIGNANT
     Dosage: 800MG
     Route: 042
     Dates: start: 20201013, end: 20201106
  6. PEMBROLIZUMAB. [Suspect]
     Active Substance: PEMBROLIZUMAB
     Indication: NEOPLASM MALIGNANT
     Dosage: 200MG
     Route: 042
     Dates: start: 20201106, end: 20201106
  7. DOBETIN TOTALE [Concomitant]
     Dosage: 1000MG
  8. LEVETIRACETAM. [Concomitant]
     Active Substance: LEVETIRACETAM
     Indication: MENINGIOMA BENIGN
     Dosage: 2000MG
     Route: 048
     Dates: start: 20201008
  9. PNEUMOCOCCAL POLYSACCHARIDE VACCINE [Concomitant]
     Active Substance: PNEUMOCOCCAL VACCINE POLYVALENT
     Dates: start: 20201116

REACTIONS (2)
  - Cholestasis [Recovered/Resolved with Sequelae]
  - Hepatocellular injury [Recovered/Resolved with Sequelae]

NARRATIVE: CASE EVENT DATE: 20201121
